FAERS Safety Report 8964056 (Version 4)
Quarter: 2013Q2

REPORT INFORMATION
  Report Type: Spontaneous
  Country: US (occurrence: US)
  Receive Date: 20121213
  Receipt Date: 20130412
  Transmission Date: 20140414
  Serious: Yes (Hospitalization)
  Sender: FDA-Public Use
  Company Number: US-GLAXOSMITHKLINE-A0981540A

PATIENT
  Age: 1 Year
  Sex: Female

DRUGS (3)
  1. FLOLAN [Suspect]
     Indication: PRODUCT USED FOR UNKNOWN INDICATION
     Dosage: 38NGKM CONTINUOUS
     Route: 042
     Dates: start: 20120315
  2. BACITRACIN [Suspect]
     Indication: CATHETER SITE DISCHARGE
     Route: 065
  3. TRACLEER [Concomitant]
     Indication: PRODUCT USED FOR UNKNOWN INDICATION

REACTIONS (9)
  - Lethargy [Unknown]
  - Ill-defined disorder [Unknown]
  - Application site swelling [Not Recovered/Not Resolved]
  - Catheter site discharge [Not Recovered/Not Resolved]
  - Infection [Unknown]
  - Pyrexia [Unknown]
  - Oxygen saturation decreased [Unknown]
  - Catheter site erythema [Unknown]
  - Catheter site swelling [Unknown]
